FAERS Safety Report 16897998 (Version 3)
Quarter: 2019Q4

REPORT INFORMATION
  Report Type: Spontaneous
  Country: US (occurrence: US)
  Receive Date: 20191009
  Receipt Date: 20191021
  Transmission Date: 20200122
  Serious: Yes (Other)
  Sender: FDA-Public Use
  Company Number: US-PFIZER INC-2019434249

PATIENT
  Sex: Female

DRUGS (2)
  1. XELJANZ XR [Suspect]
     Active Substance: TOFACITINIB CITRATE
     Dosage: 11 MG, DAILY
     Route: 048
  2. XELJANZ XR [Suspect]
     Active Substance: TOFACITINIB CITRATE
     Dosage: 3 DF, FOR 3 DAYS

REACTIONS (13)
  - Pruritus [Unknown]
  - Oropharyngeal pain [Unknown]
  - Myalgia [Unknown]
  - Abdominal pain upper [Unknown]
  - Malaise [Unknown]
  - Rash [Unknown]
  - Dyspnoea [Unknown]
  - Headache [Unknown]
  - Asthenia [Unknown]
  - Chest pain [Unknown]
  - Erythema [Unknown]
  - Choking [Unknown]
  - Pharyngeal swelling [Unknown]
